FAERS Safety Report 7198497-X (Version None)
Quarter: 2010Q4

REPORT INFORMATION
  Report Type: 
  Country: None (occurrence: None)
  Receive Date: 20101227
  Receipt Date: 20101221
  Transmission Date: 20110411
  Serious: Yes (Death, Hospitalization, Other)
  Sender: FDA-Public Use
  Company Number: PHHY2010US25144

PATIENT
  Sex: Male

DRUGS (12)
  1. EXJADE [Suspect]
     Dosage: 500 MG, BID
     Route: 048
     Dates: start: 20090403
  2. EXJADE [Suspect]
     Dosage: 500 MG, BID
     Route: 048
     Dates: start: 20100628
  3. MIRALAX [Concomitant]
  4. GABAPENTIN [Concomitant]
  5. COLACE [Concomitant]
  6. LASIX [Concomitant]
  7. FLOMOX [Concomitant]
  8. M.V.I. [Concomitant]
  9. POTASSIUM CHLORIDE [Concomitant]
  10. ACYCLOVIR [Concomitant]
  11. ALBUTEROL [Concomitant]
  12. AMOXICILLIN [Concomitant]

REACTIONS (12)
  - ABDOMINAL DISTENSION [None]
  - ATRIAL FIBRILLATION [None]
  - DEHYDRATION [None]
  - DIARRHOEA [None]
  - DUODENAL ULCER [None]
  - MOUTH ULCERATION [None]
  - NAUSEA [None]
  - ORAL HERPES [None]
  - ORAL PAIN [None]
  - RENAL FAILURE ACUTE [None]
  - SEPSIS [None]
  - URINARY TRACT INFECTION [None]
